FAERS Safety Report 4503283-2 (Version None)
Quarter: 2004Q4

REPORT INFORMATION
  Report Type: 
  Country: None (occurrence: None)
  Receive Date: 20041112
  Receipt Date: 20041104
  Transmission Date: 20050328
  Serious: Yes (Hospitalization)
  Sender: FDA-Public Use
  Company Number: 2004PK01472

PATIENT
  Age: 60 Year
  Sex: Male
  Weight: 83.5 kg

DRUGS (8)
  1. IRESSA [Suspect]
     Indication: NON-SMALL CELL LUNG CANCER
     Dosage: 250 MG DAILY PO
     Route: 048
     Dates: start: 20040128, end: 20040226
  2. NOVAMINSULFON [Concomitant]
  3. ASPIRIN [Concomitant]
  4. VIANI [Concomitant]
  5. ATOVENT [Concomitant]
  6. XANEF [Concomitant]
  7. BELOC ZOK [Concomitant]
  8. NORVASC [Concomitant]

REACTIONS (3)
  - ABDOMINAL PAIN [None]
  - GENERAL PHYSICAL HEALTH DETERIORATION [None]
  - MUCOSAL INFLAMMATION [None]
